FAERS Safety Report 15387562 (Version 2)
Quarter: 2018Q3

REPORT INFORMATION
  Report Type: Spontaneous
  Country: CZ (occurrence: CZ)
  Receive Date: 20180914
  Receipt Date: 20180919
  Transmission Date: 20181010
  Serious: Yes (Other)
  Sender: FDA-Public Use
  Company Number: PHHY2018CZ095903

PATIENT
  Sex: Male

DRUGS (2)
  1. TASIGNA [Suspect]
     Active Substance: NILOTINIB
     Indication: CHRONIC MYELOID LEUKAEMIA
     Dosage: 600 MG, QD
     Route: 065
     Dates: start: 20161024
  2. HYDROXYUREA. [Concomitant]
     Active Substance: HYDROXYUREA
     Indication: PRODUCT USED FOR UNKNOWN INDICATION
     Dosage: UNK
     Route: 065
     Dates: start: 20161006

REACTIONS (10)
  - Peripheral ischaemia [Unknown]
  - Intermittent claudication [Unknown]
  - Coronary artery stenosis [Unknown]
  - Angina pectoris [Unknown]
  - Chronic obstructive pulmonary disease [Unknown]
  - Acute myocardial infarction [Unknown]
  - Chest discomfort [Unknown]
  - Myocardial ischaemia [Unknown]
  - Peripheral venous disease [Unknown]
  - Palpitations [Unknown]

NARRATIVE: CASE EVENT DATE: 201612
